FAERS Safety Report 7070912-1 (Version None)
Quarter: 2010Q4

REPORT INFORMATION
  Report Type: 
  Country: None (occurrence: None)
  Receive Date: 20101029
  Receipt Date: 20101018
  Transmission Date: 20110411
  Serious: Yes (Hospitalization)
  Sender: FDA-Public Use
  Company Number: PHHY2010US47258

PATIENT
  Sex: Male

DRUGS (11)
  1. NEORAL [Suspect]
     Indication: RENAL TRANSPLANT
     Dosage: 125 MG, BID
     Route: 048
     Dates: start: 19990101
  2. NEORAL [Suspect]
     Dosage: 100 MG, BID
     Route: 048
     Dates: start: 20100301
  3. CELLCEPT [Concomitant]
     Dosage: 250 MG, BID
     Route: 048
  4. ALLOPURINOL [Concomitant]
     Dosage: 300 MG, QD
     Route: 048
  5. ASPIR [Concomitant]
  6. CLONIDINE [Concomitant]
     Dosage: 0.3 MG, BID
     Route: 048
  7. LORTAB [Concomitant]
     Indication: PAIN
     Dosage: 500MG/ 7.5MG EVERY SIX HOURS
     Route: 048
  8. METOPROLOL [Concomitant]
     Dosage: 25 MG, QD
     Route: 048
  9. NORVASC [Concomitant]
     Dosage: 5 MG, QD
     Route: 048
  10. PREDNISONE [Concomitant]
     Dosage: 10 MG, QD
  11. RANITIDINE [Concomitant]
     Dosage: 150 MG, QD
     Route: 048

REACTIONS (10)
  - BLOOD GLUCOSE INCREASED [None]
  - DEHYDRATION [None]
  - DIABETES MELLITUS [None]
  - DRUG DOSE OMISSION [None]
  - FEELING HOT [None]
  - GLYCOSYLATED HAEMOGLOBIN INCREASED [None]
  - MUSCULOSKELETAL STIFFNESS [None]
  - POLYDIPSIA [None]
  - POLYURIA [None]
  - RENAL PAIN [None]
